FAERS Safety Report 10525947 (Version 1)
Quarter: 2014Q4

REPORT INFORMATION
  Report Type: Spontaneous
  Country: DK (occurrence: FR)
  Receive Date: 20141017
  Receipt Date: 20141017
  Transmission Date: 20150528
  Serious: Yes (Disabling)
  Sender: FDA-Public Use
  Company Number: FR-FRI-1000071634

PATIENT
  Age: 67 Year
  Sex: Male

DRUGS (7)
  1. URBANYL [Concomitant]
     Active Substance: CLOBAZAM
  2. ZAMUDOL [Concomitant]
     Active Substance: TRAMADOL HYDROCHLORIDE
  3. BISOPROLOL [Concomitant]
     Active Substance: BISOPROLOL
  4. ESCITALOPRAM [Suspect]
     Active Substance: ESCITALOPRAM OXALATE
     Dosage: 15 MG
     Route: 048
     Dates: end: 20140805
  5. MOPRAL [Concomitant]
     Active Substance: OMEPRAZOLE SODIUM
  6. FENOFIBRATE. [Concomitant]
     Active Substance: FENOFIBRATE
  7. PREVISCAN [Suspect]
     Active Substance: FLUINDIONE
     Dosage: 10 MG
     Route: 048
     Dates: end: 20140805

REACTIONS (1)
  - Cerebral haematoma [Recovered/Resolved with Sequelae]

NARRATIVE: CASE EVENT DATE: 20140807
